FAERS Safety Report 9303147 (Version 1)
Quarter: 2013Q2

REPORT INFORMATION
  Report Type: Spontaneous
  Country: TW (occurrence: TW)
  Receive Date: 20130522
  Receipt Date: 20130522
  Transmission Date: 20140414
  Serious: Yes (Life-Threatening, Hospitalization)
  Sender: FDA-Public Use
  Company Number: TW-SANOFI-AVENTIS-2013SA050398

PATIENT
  Age: 30 Year
  Sex: Male

DRUGS (5)
  1. ZOLPIDEM TARTRATE [Suspect]
     Indication: SUICIDE ATTEMPT
     Route: 048
  2. DIAZEPAM [Suspect]
     Indication: SUICIDE ATTEMPT
     Route: 048
  3. VENLAFAXINE [Suspect]
     Indication: SUICIDE ATTEMPT
     Route: 048
  4. TRAZODONE HYDROCHLORIDE [Suspect]
     Indication: SUICIDE ATTEMPT
     Route: 048
  5. MOCLOBEMIDE [Suspect]
     Indication: SUICIDE ATTEMPT
     Route: 048

REACTIONS (19)
  - Serotonin syndrome [Unknown]
  - Overdose [Unknown]
  - Myoclonus [Recovered/Resolved]
  - Hyperreflexia [Unknown]
  - Coma scale abnormal [Unknown]
  - Heart rate increased [Unknown]
  - Body temperature decreased [Unknown]
  - Loss of consciousness [Unknown]
  - Blood pressure decreased [Unknown]
  - Renal failure acute [Unknown]
  - Blood potassium increased [Unknown]
  - Blood creatinine increased [Recovering/Resolving]
  - Anuria [Recovering/Resolving]
  - Metabolic acidosis [Unknown]
  - Blood lactic acid increased [Unknown]
  - Blood pH increased [Unknown]
  - Blood bicarbonate decreased [Unknown]
  - Rhabdomyolysis [Unknown]
  - Blood creatine phosphokinase increased [Unknown]
